FAERS Safety Report 9999345 (Version 1)
Quarter: 2014Q1

REPORT INFORMATION
  Report Type: Spontaneous
  Country: EG (occurrence: None)
  Receive Date: 20140310
  Receipt Date: 20140310
  Transmission Date: 20141002
  Serious: Yes (Hospitalization)
  Sender: FDA-Public Use
  Company Number: 2220855

PATIENT
  Age: 14 Year
  Sex: Male

DRUGS (8)
  1. (CYTARABINE) [Suspect]
     Indication: NON-HODGKIN^S LYMPHOMA
  2. (VINCRISTINE SULFATE) [Suspect]
     Indication: NON-HODGKIN^S LYMPHOMA
  3. (METHOTREXATE) [Suspect]
     Indication: NON-HODGKIN^S LYMPHOMA
  4. (CORTICOSTEROIDS) [Suspect]
     Indication: NON-HODGKIN^S LYMPHOMA
  5. IFOSFAMIDE [Suspect]
     Indication: NON-HODGKIN^S LYMPHOMA
  6. (CYCLOPHOSPHAMIDE) [Suspect]
     Indication: NON-HODGKIN^S LYMPHOMA
  7. DOXORUBICIN [Suspect]
     Indication: NON-HODGKIN^S LYMPHOMA
  8. (ETOPOSIDE) [Suspect]
     Indication: NON-HODGKIN^S LYMPHOMA

REACTIONS (1)
  - Osteonecrosis [None]
